FAERS Safety Report 25743917 (Version 1)
Quarter: 2025Q3

REPORT INFORMATION
  Report Type: Spontaneous
  Country: JP (occurrence: JP)
  Receive Date: 20250831
  Receipt Date: 20250831
  Transmission Date: 20251020
  Serious: Yes (Other)
  Sender: ORIENT PHARMA
  Company Number: JP-Orient Pharma-000391

PATIENT
  Age: 37 Year
  Sex: Female

DRUGS (12)
  1. EZETIMIBE [Suspect]
     Active Substance: EZETIMIBE
     Indication: Type IIa hyperlipidaemia
  2. ASPIRIN [Suspect]
     Active Substance: ASPIRIN
     Indication: Acute myocardial infarction
  3. BISOPROLOL [Suspect]
     Active Substance: BISOPROLOL
     Indication: Acute myocardial infarction
  4. PRAVASTATIN [Suspect]
     Active Substance: PRAVASTATIN
     Indication: Type IIa hyperlipidaemia
  5. EVOLOCUMAB [Suspect]
     Active Substance: EVOLOCUMAB
     Indication: Type IIa hyperlipidaemia
  6. COLESTILAN CHLORIDE [Suspect]
     Active Substance: COLESTILAN CHLORIDE
     Indication: Type IIa hyperlipidaemia
  7. COLESTILAN CHLORIDE [Suspect]
     Active Substance: COLESTILAN CHLORIDE
     Indication: Coronary artery stenosis
  8. PRAVASTATIN [Suspect]
     Active Substance: PRAVASTATIN
     Indication: Type IIa hyperlipidaemia
  9. EZETIMIBE [Suspect]
     Active Substance: EZETIMIBE
     Indication: Coronary artery stenosis
  10. PRAVASTATIN [Suspect]
     Active Substance: PRAVASTATIN
     Indication: Coronary artery stenosis
  11. EVOLOCUMAB [Suspect]
     Active Substance: EVOLOCUMAB
     Indication: Coronary artery stenosis
  12. PRAVASTATIN [Suspect]
     Active Substance: PRAVASTATIN
     Indication: Type IIa hyperlipidaemia

REACTIONS (2)
  - Drug-induced liver injury [Unknown]
  - Maternal exposure during pregnancy [Unknown]
